FAERS Safety Report 10210518 (Version 1)
Quarter: 2014Q2

REPORT INFORMATION
  Report Type: Spontaneous
  Country: US (occurrence: US)
  Receive Date: 20140602
  Receipt Date: 20140602
  Transmission Date: 20141212
  Serious: No
  Sender: FDA-Public Use
  Company Number: US-BAYER-2014-076607

PATIENT
  Age: 36 Year
  Sex: Male

DRUGS (1)
  1. CIPRO [Suspect]
     Indication: URETHRITIS
     Dosage: 500 MG, BID
     Dates: start: 201402

REACTIONS (3)
  - Tendonitis [Recovering/Resolving]
  - Arthropathy [Recovering/Resolving]
  - Fear [Recovering/Resolving]
